FAERS Safety Report 17170419 (Version 2)
Quarter: 2020Q3

REPORT INFORMATION
  Report Type: Spontaneous
  Country: US (occurrence: AT)
  Receive Date: 20191218
  Receipt Date: 20200928
  Transmission Date: 20201105
  Serious: Yes (Life-Threatening, Other)
  Sender: FDA-Public Use
  Company Number: US-BAYER-2019-227411

PATIENT
  Age: 63 Year
  Sex: Male

DRUGS (2)
  1. FINGOLIMOD. [Suspect]
     Active Substance: FINGOLIMOD
     Indication: RELAPSING-REMITTING MULTIPLE SCLEROSIS
     Dosage: 0.5 MG
     Route: 065
     Dates: start: 201205
  2. INTERFERON BETA ? 1B [Suspect]
     Active Substance: INTERFERON BETA-1B
     Indication: MULTIPLE SCLEROSIS RELAPSE
     Dosage: UNK
     Route: 065

REACTIONS (11)
  - Malaise [Not Recovered/Not Resolved]
  - Disease recurrence [Unknown]
  - Muscular weakness [None]
  - Multiple sclerosis relapse [None]
  - Bladder dysfunction [Unknown]
  - Atrioventricular block complete [Not Recovered/Not Resolved]
  - Rebound effect [None]
  - Atrioventricular block second degree [Not Recovered/Not Resolved]
  - Dyspnoea [Not Recovered/Not Resolved]
  - Bundle branch block right [None]
  - Renal failure [Unknown]
